FAERS Safety Report 10203949 (Version 1)
Quarter: 2014Q2

REPORT INFORMATION
  Report Type: Spontaneous
  Country: BR (occurrence: BR)
  Receive Date: 20140529
  Receipt Date: 20140529
  Transmission Date: 20141212
  Serious: Yes (Other)
  Sender: FDA-Public Use
  Company Number: BR-ABBVIE-14P-020-1242260-00

PATIENT
  Sex: Female

DRUGS (3)
  1. KLARICID UD [Suspect]
     Indication: PRODUCT USED FOR UNKNOWN INDICATION
     Dates: start: 201405
  2. ALL OTHER THERAPEUTIC PRODUCTS [Concomitant]
     Indication: SEDATIVE THERAPY
  3. ALL OTHER THERAPEUTIC PRODUCTS [Concomitant]
     Indication: ANTIDEPRESSANT THERAPY

REACTIONS (4)
  - Unresponsive to stimuli [Unknown]
  - Hallucination [Unknown]
  - Hearing impaired [Unknown]
  - Abdominal pain upper [Unknown]
